FAERS Safety Report 13777848 (Version 1)
Quarter: 2017Q3

REPORT INFORMATION
  Report Type: Spontaneous
  Country: KR (occurrence: KR)
  Receive Date: 20170721
  Receipt Date: 20170721
  Transmission Date: 20171127
  Serious: Yes (Other)
  Sender: FDA-Public Use
  Company Number: KR-009507513-1707KOR005881

PATIENT
  Age: 43 Year
  Sex: Male
  Weight: 58.3 kg

DRUGS (8)
  1. DAUNORUBICIN [Concomitant]
     Active Substance: DAUNORUBICIN
     Indication: ACUTE MYELOID LEUKAEMIA
     Dosage: 150 MG, QD, ONCE DAILY
     Route: 042
     Dates: start: 20170609, end: 20170611
  2. TAZOPERAN [Concomitant]
     Indication: PNEUMONIA
     Dosage: 4500 MG, QID
     Route: 042
     Dates: start: 20170604, end: 20170613
  3. VANCOMYCIN [Concomitant]
     Active Substance: VANCOMYCIN
     Indication: PNEUMONIA
     Dosage: 800 MG, BID, TWICE A DAY
     Route: 042
     Dates: start: 20170614, end: 20170621
  4. NOXAFIL [Suspect]
     Active Substance: POSACONAZOLE
     Dosage: 300 MG, QD
     Route: 048
     Dates: start: 20170609, end: 20170615
  5. CYTARABINE. [Concomitant]
     Active Substance: CYTARABINE
     Indication: ACUTE MYELOID LEUKAEMIA
     Dosage: 330 MG, QD, ONCE DAILY
     Route: 042
     Dates: start: 20170609, end: 20170615
  6. NOXAFIL [Suspect]
     Active Substance: POSACONAZOLE
     Indication: ANTIFUNGAL PROPHYLAXIS
     Dosage: 300 MG, BID
     Route: 048
     Dates: start: 20170608, end: 20170608
  7. MEROPENEM. [Concomitant]
     Active Substance: MEROPENEM
     Indication: PNEUMONIA
     Dosage: 1 G, TID, THREE TIMES A DAY
     Route: 042
     Dates: start: 20170614
  8. CRAVIT [Concomitant]
     Active Substance: LEVOFLOXACIN
     Indication: PNEUMONIA
     Dosage: 750 MG, QD, ONCE DAILY, STRENGTH: 750MG/150ML
     Route: 042
     Dates: start: 20170604

REACTIONS (1)
  - Bronchopulmonary aspergillosis [Recovered/Resolved]

NARRATIVE: CASE EVENT DATE: 20170615
